FAERS Safety Report 8866048 (Version 2)
Quarter: 2013Q1

REPORT INFORMATION
  Report Type: Spontaneous
  Country: US (occurrence: US)
  Receive Date: 20121025
  Receipt Date: 20130109
  Transmission Date: 20140127
  Serious: No
  Sender: FDA-Public Use
  Company Number: US-009507513-1210USA008171

PATIENT
  Sex: Female

DRUGS (11)
  1. VICTRELIS [Suspect]
     Indication: HEPATITIS C
     Dosage: 800 MG, TID
     Route: 048
     Dates: start: 201205
  2. PEGASYS [Suspect]
  3. RIBAVIRIN [Suspect]
  4. PREVACID [Concomitant]
  5. HYDROCHLOROTHIAZIDE (+) LOSARTAN POTASSIUM [Concomitant]
  6. PRILOSEC [Concomitant]
  7. ROLAIDS (CALCIUM CARBONATE (+) MAGNESIUM HYDROXIDE) [Concomitant]
  8. BONE MEAL [Concomitant]
  9. VITAMIN D (UNSPECIFIED) [Concomitant]
  10. TYLENOL [Concomitant]
  11. IBUPROFEN [Concomitant]

REACTIONS (4)
  - White blood cell count decreased [Not Recovered/Not Resolved]
  - Nausea [Not Recovered/Not Resolved]
  - Vomiting [Not Recovered/Not Resolved]
  - Rash [Not Recovered/Not Resolved]
